FAERS Safety Report 8182753-2 (Version None)
Quarter: 2012Q1

REPORT INFORMATION
  Report Type: 
  Country: None (occurrence: None)
  Receive Date: 20120305
  Receipt Date: 20120224
  Transmission Date: 20120608
  Serious: Yes (Hospitalization, Other)
  Sender: FDA-Public Use
  Company Number: US-BAYER-2011-063368

PATIENT
  Age: 27 Year
  Sex: Female
  Weight: 61.224 kg

DRUGS (11)
  1. PRILOSEC [Concomitant]
  2. MICROGESTIN 1.5/30 [Concomitant]
  3. BENEFIBER [Concomitant]
     Dosage: 1 TSP QD
     Route: 048
     Dates: end: 20091117
  4. YAZ [Suspect]
     Indication: CONTRACEPTION
     Dosage: UNK
     Route: 048
     Dates: start: 20010101, end: 20090101
  5. DROSPIRENONE AND ETHINYL ESTRADIOL [Suspect]
     Indication: CONTRACEPTION
     Dosage: UNK
     Route: 048
     Dates: start: 20010101, end: 20090101
  6. BENTYL [Concomitant]
  7. PERCOCET [Concomitant]
     Indication: PAIN
     Dosage: UNK UNK, PRN
     Route: 048
     Dates: end: 20091127
  8. LOESTRIN 1.5/30 [Concomitant]
  9. YASMIN [Suspect]
     Indication: CONTRACEPTION
     Dosage: UNK
     Route: 048
     Dates: start: 20010101, end: 20090101
  10. LIALDA [Concomitant]
  11. GASTROCROM [Concomitant]

REACTIONS (7)
  - GENERAL PHYSICAL HEALTH DETERIORATION [None]
  - BILIARY DYSKINESIA [None]
  - EMOTIONAL DISTRESS [None]
  - GALLBLADDER INJURY [None]
  - CHOLECYSTITIS CHRONIC [None]
  - SCAR [None]
  - PAIN [None]
